FAERS Safety Report 7475295-0 (Version None)
Quarter: 2011Q2

REPORT INFORMATION
  Report Type: 
  Country: None (occurrence: None)
  Receive Date: 20110509
  Receipt Date: 20110509
  Transmission Date: 20111010
  Serious: Yes (Life-Threatening, Other)
  Sender: FDA-Public Use
  Company Number: None

PATIENT
  Age: 38 Year
  Sex: Male
  Weight: 65.7716 kg

DRUGS (4)
  1. BUPROPION HCL [Suspect]
     Indication: DEPRESSION
     Dosage: 1 1/2 TABS (450 MG) ONCE DAILY PO STARTED AT 150 MG UP'D TO 300 AT 2WKS UP'D TO 450 ON 3/3/11
     Route: 048
     Dates: start: 20110208, end: 20110305
  2. ADVAIR DISKUS 100/50 [Concomitant]
  3. SINGULAIR [Concomitant]
  4. NASONEX [Concomitant]

REACTIONS (6)
  - HALLUCINATION [None]
  - IMPAIRED WORK ABILITY [None]
  - POSTICTAL HEADACHE [None]
  - STRESS [None]
  - GRAND MAL CONVULSION [None]
  - ECONOMIC PROBLEM [None]
